FAERS Safety Report 9362177 (Version 1)
Quarter: 2013Q2

REPORT INFORMATION
  Report Type: Report from Study
  Country: CA (occurrence: CA)
  Receive Date: 20130622
  Receipt Date: 20130622
  Transmission Date: 20140414
  Serious: Yes (Death)
  Sender: FDA-Public Use
  Company Number: CA-ROCHE-1240152

PATIENT
  Sex: Male

DRUGS (13)
  1. AVASTIN [Suspect]
     Indication: NEOPLASM MALIGNANT
     Route: 042
     Dates: start: 20100813
  2. AVASTIN [Suspect]
     Route: 042
     Dates: start: 20100903
  3. AVASTIN [Suspect]
     Route: 042
     Dates: start: 20101015
  4. AVASTIN [Suspect]
     Route: 042
     Dates: start: 20120912
  5. AVASTIN [Suspect]
     Route: 042
     Dates: start: 20121004
  6. AVASTIN [Suspect]
     Route: 042
     Dates: end: 20121102
  7. METFORMIN [Concomitant]
  8. METFORMIN [Concomitant]
  9. LIPITOR [Concomitant]
  10. RAMIPRIL [Concomitant]
  11. OXYCODONE [Concomitant]
  12. FOLIC ACID [Concomitant]
  13. MORPHINE SULFATE [Concomitant]

REACTIONS (1)
  - Death [Fatal]
